FAERS Safety Report 9785923 (Version 1)
Quarter: 2013Q4

REPORT INFORMATION
  Report Type: Report from Study
  Country: CA (occurrence: CA)
  Receive Date: 20131227
  Receipt Date: 20131227
  Transmission Date: 20140711
  Serious: Yes (Hospitalization)
  Sender: FDA-Public Use
  Company Number: CA-IPSEN BIOPHARMACEUTICALS, INC.-2013-5754

PATIENT
  Age: 61 Year
  Sex: Male

DRUGS (1)
  1. SOMATULINE SR (LANREOTIDE) (LANREOTIDE ACETATE) [Suspect]
     Indication: ACROMEGALY
     Dosage: 60 MG
     Route: 058
     Dates: start: 20131011

REACTIONS (1)
  - Hospitalisation [Unknown]
